FAERS Safety Report 8389786-1 (Version None)
Quarter: 2012Q2

REPORT INFORMATION
  Report Type: 
  Country: None (occurrence: None)
  Receive Date: 20120529
  Receipt Date: 20120522
  Transmission Date: 20120825
  Serious: Yes (Other)
  Sender: FDA-Public Use
  Company Number: PHHY2012DE036712

PATIENT
  Sex: Male
  Weight: 78 kg

DRUGS (5)
  1. DIURETICS [Concomitant]
     Dosage: 10 MG, DAILY
     Route: 048
     Dates: start: 20120401
  2. METOPROLOL [Concomitant]
     Dosage: 47.5 MG, DAILY
     Route: 048
     Dates: start: 20120301
  3. EXJADE [Suspect]
     Dosage: 1000 MG, DAILY
     Route: 048
     Dates: start: 20120417, end: 20120426
  4. ASPIRIN [Concomitant]
     Dosage: 1000 MG, DAILY
     Route: 048
     Dates: start: 20110501
  5. EXJADE [Suspect]
     Indication: IRON OVERLOAD
     Dosage: 1000 MG, DAILY
     Route: 048
     Dates: start: 20120327, end: 20120403

REACTIONS (2)
  - DIPLOPIA [None]
  - VISUAL IMPAIRMENT [None]
